FAERS Safety Report 5368225-9 (Version None)
Quarter: 2007Q2

REPORT INFORMATION
  Report Type: 
  Country: None (occurrence: None)
  Receive Date: 20070625
  Receipt Date: 20070621
  Transmission Date: 20071010
  Serious: Yes (Death)
  Sender: FDA-Public Use
  Company Number: PHNU2007DE02221

PATIENT
  Age: 93 Year
  Sex: Male
  Weight: 74 kg

DRUGS (3)
  1. NIFEDIPINE [Concomitant]
     Dosage: 1-0-1 TABLETS/DAY
     Route: 048
  2. DIOVAN [Suspect]
     Dosage: 80MG, QD
     Route: 048
     Dates: end: 20061127
  3. DIOVAN [Suspect]
     Dosage: 160MG, QD
     Dates: start: 20061127

REACTIONS (1)
  - PNEUMONIA [None]
